FAERS Safety Report 13847128 (Version 8)
Quarter: 2018Q1

REPORT INFORMATION
  Report Type: Spontaneous
  Country: US (occurrence: US)
  Receive Date: 20170808
  Receipt Date: 20180131
  Transmission Date: 20180508
  Serious: Yes (Hospitalization, Other)
  Sender: FDA-Public Use
  Company Number: US-ACTELION-A-US2017-157745

PATIENT
  Age: 43 Year
  Sex: Male
  Weight: 113.38 kg

DRUGS (6)
  1. OPSUMIT [Suspect]
     Active Substance: MACITENTAN
     Indication: PULMONARY HYPERTENSION
     Dosage: 10 MG, QD
     Route: 048
     Dates: start: 20161213
  2. ADCIRCA [Concomitant]
     Active Substance: TADALAFIL
  3. VELETRI [Suspect]
     Active Substance: EPOPROSTENOL
     Dosage: 4.16 NG/KG, PER MIN
     Route: 042
  4. SILDENAFIL. [Concomitant]
     Active Substance: SILDENAFIL
  5. VELETRI [Suspect]
     Active Substance: EPOPROSTENOL
     Indication: PULMONARY HYPERTENSION
     Dosage: 8.12 NG/KG, PER MIN
     Route: 042
  6. XARELTO [Concomitant]
     Active Substance: RIVAROXABAN

REACTIONS (14)
  - Dyspnoea exertional [Not Recovered/Not Resolved]
  - Pulmonary hypertension [Unknown]
  - Palpitations [Not Recovered/Not Resolved]
  - Arterial rupture [Unknown]
  - Blood bilirubin abnormal [Unknown]
  - Haemoptysis [Recovered/Resolved]
  - Wheezing [Unknown]
  - Nausea [Unknown]
  - Atrial flutter [Unknown]
  - Dyspnoea [Unknown]
  - Infusion site erythema [Unknown]
  - Infusion site discharge [Unknown]
  - Catheter site rash [Unknown]
  - Flushing [Unknown]

NARRATIVE: CASE EVENT DATE: 20170301
